FAERS Safety Report 8333028-X (Version None)
Quarter: 2012Q2

REPORT INFORMATION
  Report Type: 
  Country: None (occurrence: None)
  Receive Date: 20120503
  Receipt Date: 20120424
  Transmission Date: 20120825
  Serious: No
  Sender: FDA-Public Use
  Company Number: PHHY2012DE031350

PATIENT
  Sex: Female

DRUGS (2)
  1. DIOVAN [Suspect]
     Dosage: 2 DF,
  2. DIOVAN [Suspect]
     Dosage: 80 MG,

REACTIONS (1)
  - ACCIDENTAL DRUG INTAKE BY CHILD [None]
